FAERS Safety Report 23298277 (Version 6)
Quarter: 2024Q1

REPORT INFORMATION
  Report Type: Report from Study
  Country: DE (occurrence: DE)
  Receive Date: 20231214
  Receipt Date: 20240125
  Transmission Date: 20240409
  Serious: Yes (Hospitalization, Other)
  Sender: FDA-Public Use
  Company Number: DE-PFM-2023-06991

PATIENT
  Sex: Male
  Weight: 82 kg

DRUGS (8)
  1. BRAFTOVI [Suspect]
     Active Substance: ENCORAFENIB
     Indication: Colorectal cancer
     Dosage: 300 MG, DAILY
     Route: 048
     Dates: start: 20231024
  2. CETUXIMAB [Suspect]
     Active Substance: CETUXIMAB
     Indication: Colorectal cancer
     Dosage: 500 MG/M2, WEEKLY
     Route: 042
     Dates: start: 20231024
  3. CETUXIMAB [Suspect]
     Active Substance: CETUXIMAB
     Dosage: 400 MG/M2, 2 WEEKLY
     Route: 065
     Dates: start: 20231107
  4. CETUXIMAB [Suspect]
     Active Substance: CETUXIMAB
     Dosage: 500 MG/M2, 2 WEEKLY
     Route: 065
     Dates: start: 20231120
  5. CETUXIMAB [Suspect]
     Active Substance: CETUXIMAB
     Dosage: UNK,2-WEEKLY
     Route: 065
     Dates: start: 20231212
  6. CETUXIMAB [Suspect]
     Active Substance: CETUXIMAB
     Dosage: UNK,2-WEEKLY
     Route: 065
     Dates: start: 20231228
  7. PANTOPRAZOLE SODIUM [Concomitant]
     Active Substance: PANTOPRAZOLE SODIUM
     Indication: Prophylaxis
     Dosage: 40 MG, DAILY
     Route: 048
     Dates: start: 202303
  8. NOVALGIN (METAMIZOLE SODIUM) [Concomitant]
     Active Substance: METAMIZOLE SODIUM
     Indication: Pain
     Dosage: 1000 MG, PRN  (AS NEEDED)
     Route: 048
     Dates: start: 202303

REACTIONS (1)
  - Ulcerative duodenitis [Recovering/Resolving]

NARRATIVE: CASE EVENT DATE: 20231203
